FAERS Safety Report 23576782 (Version 1)
Quarter: 2024Q1

REPORT INFORMATION
  Report Type: Spontaneous
  Country: CN (occurrence: CN)
  Receive Date: 20240228
  Receipt Date: 20240228
  Transmission Date: 20240410
  Serious: Yes (Death, Other)
  Sender: FDA-Public Use
  Company Number: CN-AMGEN-CHNSP2024035314

PATIENT

DRUGS (3)
  1. XGEVA [Suspect]
     Active Substance: DENOSUMAB
     Indication: Metastases to bone
     Dosage: 120 MILLIGRAM, Q4WK (ON THE FIRST DAY,WEEKS 5,13,25,37, AND 53,ORON EARLY WITHDRAWAL FROM THE STUDY)
     Route: 058
  2. CALCIUM [Concomitant]
     Active Substance: CALCIUM
     Indication: Supplementation therapy
     Dosage: 500 MILLIGRAM, QD
     Route: 065
  3. VITAMIN D [Concomitant]
     Active Substance: VITAMIN D NOS
     Indication: Supplementation therapy
     Dosage: 400 INTERNATIONAL UNIT, QD
     Route: 065

REACTIONS (17)
  - Death [Fatal]
  - Breast cancer [Fatal]
  - Neoplasm malignant [Fatal]
  - Lung neoplasm malignant [Fatal]
  - Renal failure [Unknown]
  - Hyperuricaemia [Unknown]
  - COVID-19 [Unknown]
  - Blood creatinine increased [Unknown]
  - Liver function test abnormal [Unknown]
  - Hypertriglyceridaemia [Unknown]
  - Back pain [Unknown]
  - Asthenia [Unknown]
  - Infection [Unknown]
  - Anaemia [Unknown]
  - Arthralgia [Unknown]
  - Hypophosphataemia [Unknown]
  - Hypocalcaemia [Unknown]
